FAERS Safety Report 8515302-7 (Version None)
Quarter: 2012Q3

REPORT INFORMATION
  Report Type: 
  Country: None (occurrence: None)
  Receive Date: 20120717
  Receipt Date: 20120705
  Transmission Date: 20120928
  Serious: No
  Sender: FDA-Public Use
  Company Number: US-ASTRAZENECA-2012SE45860

PATIENT
  Age: 80 Year
  Sex: Female
  Weight: 49.9 kg

DRUGS (3)
  1. CARDISAN [Concomitant]
  2. SYMBICORT [Suspect]
     Indication: CHRONIC OBSTRUCTIVE PULMONARY DISEASE
     Dosage: 80/4.5MCG, TWO PUFFS TWICE A DAY
     Route: 055
  3. DIAZIDE [Concomitant]

REACTIONS (1)
  - MYALGIA [None]
